FAERS Safety Report 12610630 (Version 1)
Quarter: 2016Q3

REPORT INFORMATION
  Report Type: Spontaneous
  Country: US (occurrence: US)
  Receive Date: 20160801
  Receipt Date: 20160801
  Transmission Date: 20161109
  Serious: No
  Sender: FDA-Public Use
  Company Number: US-BAUSCH-BL-2016-012914

PATIENT
  Age: 72 Year
  Sex: Female
  Weight: 54.48 kg

DRUGS (2)
  1. UCERIS [Suspect]
     Active Substance: BUDESONIDE
     Indication: COLITIS
     Dosage: FOR THE FIRST SEVEN DAYS
     Route: 054
     Dates: start: 20160421, end: 201605
  2. UCERIS [Suspect]
     Active Substance: BUDESONIDE
     Dosage: AT BED TIME
     Route: 054
     Dates: start: 20160518, end: 20160522

REACTIONS (3)
  - Ventricular extrasystoles [Recovered/Resolved]
  - Product packaging issue [Unknown]
  - Condition aggravated [Recovered/Resolved]

NARRATIVE: CASE EVENT DATE: 20160421
